FAERS Safety Report 5828272-7 (Version None)
Quarter: 2008Q3

REPORT INFORMATION
  Report Type: 
  Country: None (occurrence: None)
  Receive Date: 20080729
  Receipt Date: 20080716
  Transmission Date: 20090109
  Serious: Yes (Disabling)
  Sender: FDA-Public Use
  Company Number: UTC-000295

PATIENT
  Age: 37 Year
  Sex: Female
  Weight: 50 kg

DRUGS (2)
  1. REMODULIN [Suspect]
     Indication: PULMONARY HYPERTENSION
     Dosage: 1512 UG/KG (0.0175 UG/KG, 1 IN 1 SEC), SUBCUTANEOUS
     Route: 058
     Dates: start: 20080103, end: 20080601
  2. REVATIO [Concomitant]

REACTIONS (4)
  - DYSPNOEA [None]
  - INFUSION SITE IRRITATION [None]
  - INFUSION SITE PAIN [None]
  - VAGINAL SWELLING [None]
